FAERS Safety Report 14336547 (Version 2)
Quarter: 2018Q1

REPORT INFORMATION
  Report Type: Spontaneous
  Country: CA (occurrence: CA)
  Receive Date: 20171229
  Receipt Date: 20180107
  Transmission Date: 20180509
  Serious: Yes (Other)
  Sender: FDA-Public Use
  Company Number: CA-CONCORDIA PHARMACEUTICALS INC.-GSH201712-006716

PATIENT
  Sex: Female

DRUGS (7)
  1. HYDROXYCHLOROQUINE TABLET [Suspect]
     Active Substance: HYDROXYCHLOROQUINE
     Indication: PRODUCT USED FOR UNKNOWN INDICATION
     Route: 048
  2. METHOTREXATE. [Concomitant]
     Active Substance: METHOTREXATE
     Indication: RHEUMATOID ARTHRITIS
  3. SIMPONI [Concomitant]
     Active Substance: GOLIMUMAB
  4. LEFLUNOMIDE. [Suspect]
     Active Substance: LEFLUNOMIDE
     Indication: PRODUCT USED FOR UNKNOWN INDICATION
     Route: 048
  5. ACTEMRA [Concomitant]
     Active Substance: TOCILIZUMAB
  6. HUMIRA [Concomitant]
     Active Substance: ADALIMUMAB
  7. ORENCIA [Concomitant]
     Active Substance: ABATACEPT

REACTIONS (2)
  - Lung disorder [Unknown]
  - Retinopathy [Unknown]
